FAERS Safety Report 6484410-7 (Version None)
Quarter: 2009Q4

REPORT INFORMATION
  Report Type: 
  Country: None (occurrence: None)
  Receive Date: 20091209
  Receipt Date: 20091201
  Transmission Date: 20100525
  Serious: Yes (Hospitalization)
  Sender: FDA-Public Use
  Company Number: JP-ABBOTT-09P-087-0612540-00

PATIENT
  Age: 84 Year
  Sex: Male

DRUGS (1)
  1. LEUPLIN DEPOT [Suspect]
     Indication: PROSTATE CANCER
     Route: 058
     Dates: start: 20020101

REACTIONS (3)
  - GLOMERULONEPHRITIS MEMBRANOPROLIFERATIVE [None]
  - MIKULICZ'S DISEASE [None]
  - TUBULOINTERSTITIAL NEPHRITIS [None]
